FAERS Safety Report 17559890 (Version 1)
Quarter: 2020Q1

REPORT INFORMATION
  Report Type: Spontaneous
  Country: DE (occurrence: DE)
  Receive Date: 20200319
  Receipt Date: 20200319
  Transmission Date: 20200409
  Serious: Yes (Other)
  Sender: FDA-Public Use
  Company Number: DE-BAYER-2020-043253

PATIENT
  Age: 35 Year
  Sex: Female
  Weight: 81 kg

DRUGS (1)
  1. MIRENA [Suspect]
     Active Substance: LEVONORGESTREL
     Indication: CONTRACEPTION
     Dates: start: 20150813, end: 20191024

REACTIONS (16)
  - Nausea [Recovered/Resolved]
  - Paraesthesia [Recovered/Resolved]
  - Constipation [Recovered/Resolved]
  - Hirsutism [Recovered/Resolved with Sequelae]
  - Abdominal discomfort [Recovered/Resolved]
  - Alopecia [Recovered/Resolved]
  - Arthritis infective [Recovered/Resolved]
  - Arthralgia [Recovered/Resolved]
  - Aphasia [Recovered/Resolved]
  - Dyspepsia [Recovered/Resolved]
  - Hypoaesthesia [Recovered/Resolved]
  - Dizziness [Recovered/Resolved]
  - Restlessness [Recovered/Resolved]
  - Panic attack [Recovered/Resolved]
  - Sleep disorder [Recovered/Resolved]
  - Smear cervix abnormal [Recovering/Resolving]

NARRATIVE: CASE EVENT DATE: 2015
